FAERS Safety Report 5563856-5 (Version None)
Quarter: 2007Q4

REPORT INFORMATION
  Report Type: 
  Country: None (occurrence: None)
  Receive Date: 20071217
  Receipt Date: 20071025
  Transmission Date: 20080405
  Serious: Yes (Death)
  Sender: FDA-Public Use
  Company Number: US-SANOFI-SYNTHELABO-A03200601424

PATIENT
  Sex: Female
  Weight: 68.03 kg

DRUGS (6)
  1. CRESTOR [Interacting]
     Indication: DRUG USE FOR UNKNOWN INDICATION
     Dosage: UNK
     Route: 065
     Dates: start: 20060301
  2. PLAVIX [Suspect]
     Indication: CEREBROVASCULAR ACCIDENT
     Route: 048
  3. PRAVACHOL [Concomitant]
     Dosage: UNK
     Route: 065
  4. SOMETHING FOR CHOLESTEROL [Concomitant]
     Dosage: UNK
     Route: 065
  5. ACE INHIBITOR [Concomitant]
     Dosage: UNK
     Route: 065
  6. LISINOPRIL [Concomitant]
     Route: 065

REACTIONS (8)
  - CHEST PAIN [None]
  - CORONARY ARTERY THROMBOSIS [None]
  - DRUG INTERACTION [None]
  - HAEMORRHAGE [None]
  - HAEMORRHAGE INTRACRANIAL [None]
  - HYPOTENSION [None]
  - NAUSEA [None]
  - VOMITING [None]
